FAERS Safety Report 23917250 (Version 2)
Quarter: 2025Q1

REPORT INFORMATION
  Report Type: Spontaneous
  Country: CA (occurrence: CA)
  Receive Date: 20240529
  Receipt Date: 20250203
  Transmission Date: 20250408
  Serious: Yes (Life-Threatening, Other)
  Sender: GE HEALTHCARE
  Company Number: CA-GE HEALTHCARE-2024CSU005493

PATIENT
  Age: 21 Year
  Sex: Male
  Weight: 75 kg

DRUGS (1)
  1. VISIPAQUE [Suspect]
     Active Substance: IODIXANOL
     Indication: Computerised tomogram neck
     Route: 042
     Dates: start: 20240430, end: 20240430

REACTIONS (2)
  - Dysphagia [Recovered/Resolved]
  - Throat tightness [Recovered/Resolved]

NARRATIVE: CASE EVENT DATE: 20240430
